FAERS Safety Report 6316580-5 (Version None)
Quarter: 2009Q3

REPORT INFORMATION
  Report Type: 
  Country: None (occurrence: None)
  Receive Date: 20090820
  Receipt Date: 20090817
  Transmission Date: 20100115
  Serious: Yes (Life-Threatening, Hospitalization, Disabling, Other)
  Sender: FDA-Public Use
  Company Number: PHHY2009GL34476

PATIENT
  Sex: Female
  Weight: 60 kg

DRUGS (8)
  1. LEPONEX [Suspect]
     Indication: SCHIZOPHRENIA
     Dosage: 200 MG DAILY
     Dates: start: 20000301
  2. LEPONEX [Suspect]
     Dosage: 400 MG DAILY
     Dates: end: 20060601
  3. LYSANTIN [Concomitant]
     Indication: SCHIZOPHRENIA
     Dosage: 150 MG DAILY
     Dates: start: 20000101
  4. TRUXAL [Concomitant]
     Indication: SCHIZOPHRENIA
     Dosage: 25 MG WHEN NEEDED
     Dates: start: 20040101
  5. NOZINAN [Concomitant]
     Indication: SCHIZOPHRENIA
     Dosage: 200 MG DAILY
     Dates: start: 20000101
  6. COGENTIN [Concomitant]
     Indication: SCHIZOPHRENIA
     Dosage: 2 MG ONCE DAILY
     Dates: start: 20000101
  7. CIPRAMIL [Concomitant]
     Indication: SCHIZOPHRENIA
     Dosage: 20 MG DAILY
     Dates: start: 20000101
  8. SEMAP [Concomitant]
     Indication: SCHIZOPHRENIA
     Dosage: 40 MG TWICE EVERY WEEK
     Dates: start: 20000101

REACTIONS (6)
  - CARDIAC FAILURE [None]
  - CONGESTIVE CARDIOMYOPATHY [None]
  - MITRAL VALVE INCOMPETENCE [None]
  - PNEUMONIA [None]
  - STRABISMUS CORRECTION [None]
  - TACHYCARDIA [None]
